FAERS Safety Report 11889178 (Version 1)
Quarter: 2016Q1

REPORT INFORMATION
  Report Type: Spontaneous
  Country: US (occurrence: None)
  Receive Date: 20160104
  Receipt Date: 20160104
  Transmission Date: 20160526
  Serious: No
  Sender: FDA-Public Use
  Company Number: None

PATIENT
  Age: 52 Year
  Sex: Female
  Weight: 69.85 kg

DRUGS (7)
  1. MUCINEX [Concomitant]
     Active Substance: GUAIFENESIN
  2. MULTIVITAMIN [Concomitant]
     Active Substance: VITAMINS
  3. BENADRYL [Concomitant]
     Active Substance: DIPHENHYDRAMINE HYDROCHLORIDE
  4. PRISTIQ EXTENDED RELEASE [Concomitant]
     Active Substance: DESVENLAFAXINE SUCCINATE
  5. VOLTAREN [Suspect]
     Active Substance: DICLOFENAC SODIUM
     Indication: PAIN
     Route: 061
     Dates: start: 20151214, end: 20151218
  6. THYMULUS [Concomitant]
  7. ADDERALL [Concomitant]
     Active Substance: AMPHETAMINE ASPARTATE\AMPHETAMINE SULFATE\DEXTROAMPHETAMINE SACCHARATE\DEXTROAMPHETAMINE SULFATE

REACTIONS (10)
  - Vomiting [None]
  - Nausea [None]
  - Asthenia [None]
  - Myalgia [None]
  - Decreased appetite [None]
  - Fatigue [None]
  - Muscle tightness [None]
  - Hypertonia [None]
  - Pain [None]
  - Malaise [None]

NARRATIVE: CASE EVENT DATE: 20151214
